FAERS Safety Report 10556722 (Version 1)
Quarter: 2014Q4

REPORT INFORMATION
  Report Type: Spontaneous
  Country: US (occurrence: US)
  Receive Date: 20141031
  Receipt Date: 20141031
  Transmission Date: 20150529
  Serious: Yes (Hospitalization)
  Sender: FDA-Public Use
  Company Number: US-ASTRAZENECA-2014SE81048

PATIENT
  Age: 55 Year
  Sex: Male

DRUGS (3)
  1. BRILINTA [Suspect]
     Active Substance: TICAGRELOR
     Indication: ACUTE CORONARY SYNDROME
     Route: 048
     Dates: start: 20141019, end: 20141020
  2. BRILINTA [Suspect]
     Active Substance: TICAGRELOR
     Indication: ACUTE CORONARY SYNDROME
     Route: 048
     Dates: start: 20141019, end: 20141020
  3. PLASUGREL [Suspect]
     Active Substance: PRASUGREL
     Route: 065

REACTIONS (2)
  - Acute coronary syndrome [Unknown]
  - Device occlusion [Unknown]

NARRATIVE: CASE EVENT DATE: 20141020
